FAERS Safety Report 12186888 (Version 1)
Quarter: 2016Q1

REPORT INFORMATION
  Report Type: Spontaneous
  Country: US (occurrence: None)
  Receive Date: 20160316
  Receipt Date: 20160316
  Transmission Date: 20160526
  Serious: Yes (Hospitalization)
  Sender: FDA-Public Use
  Company Number: None

PATIENT
  Age: 60 Year
  Sex: Male
  Weight: 73.2 kg

DRUGS (19)
  1. SOFOSBUVIR 400 MG [Suspect]
     Active Substance: SOFOSBUVIR
     Indication: HEPATITIS C
     Route: 048
     Dates: start: 20140904, end: 20141224
  2. BUPROPION. [Concomitant]
     Active Substance: BUPROPION
  3. LACTULOSE. [Concomitant]
     Active Substance: LACTULOSE
  4. TRAZODONE [Concomitant]
     Active Substance: TRAZODONE HYDROCHLORIDE
  5. ZINC [Concomitant]
     Active Substance: ZINC\ZINC CHLORIDE
  6. MULTI VITAMIN [Concomitant]
     Active Substance: VITAMINS
  7. THIAMINE. [Concomitant]
     Active Substance: THIAMINE
  8. LASIX [Concomitant]
     Active Substance: FUROSEMIDE
  9. RIFAXIMIN [Concomitant]
     Active Substance: RIFAXIMIN
  10. RIBAVIRIN 600 MG [Suspect]
     Active Substance: RIBAVIRIN
     Indication: HEPATITIS C
     Route: 048
     Dates: start: 20140904, end: 20141224
  11. AMILORIDE [Concomitant]
     Active Substance: AMILORIDE
  12. NEXIUM [Concomitant]
     Active Substance: ESOMEPRAZOLE MAGNESIUM
  13. REQUIS [Concomitant]
  14. SILDENAFIL. [Concomitant]
     Active Substance: SILDENAFIL
  15. TRAMADOL. [Concomitant]
     Active Substance: TRAMADOL
  16. TREPROSTIN [Concomitant]
  17. XANAX [Concomitant]
     Active Substance: ALPRAZOLAM
  18. ZOFRAN [Concomitant]
     Active Substance: ONDANSETRON HYDROCHLORIDE
  19. OXYCODONE [Concomitant]
     Active Substance: OXYCODONE

REACTIONS (3)
  - Ascites [None]
  - Oedema [None]
  - Fluid overload [None]

NARRATIVE: CASE EVENT DATE: 20141204
